FAERS Safety Report 4780967-2 (Version None)
Quarter: 2005Q3

REPORT INFORMATION
  Report Type: 
  Country: None (occurrence: None)
  Receive Date: 20050926
  Receipt Date: 20050926
  Transmission Date: 20060218
  Serious: Yes (Hospitalization)
  Sender: FDA-Public Use
  Company Number: None

PATIENT
  Age: 63 Year
  Sex: Female
  Weight: 65.7 kg

DRUGS (5)
  1. GLEEVEC [Suspect]
     Indication: TONGUE NEOPLASM MALIGNANT STAGE UNSPECIFIED
     Dosage: 300 MG QD 21/21D
     Dates: start: 20050811, end: 20050831
  2. XELODA [Suspect]
     Dosage: 1000 MG AM  1500 MG PM  14/21 D
     Dates: start: 20050811, end: 20050831
  3. HYCOSAMINE [Concomitant]
  4. TUSSIN DM [Concomitant]
  5. ROXICODONE [Concomitant]

REACTIONS (2)
  - DYSPNOEA [None]
  - PNEUMONIA [None]
